FAERS Safety Report 17586114 (Version 1)
Quarter: 2020Q1

REPORT INFORMATION
  Report Type: Spontaneous
  Country: US (occurrence: US)
  Receive Date: 20200326
  Receipt Date: 20200326
  Transmission Date: 20200409
  Serious: No
  Sender: FDA-Public Use
  Company Number: None

PATIENT
  Age: 74 Year
  Sex: Male
  Weight: 67.95 kg

DRUGS (10)
  1. BUMETANIDE 1 MG, ORAL [Concomitant]
  2. MINOXIDIL 2.5 MG, ORAL [Concomitant]
  3. ABIRATERONE. [Suspect]
     Active Substance: ABIRATERONE ACETATE
     Indication: PROSTATE CANCER
     Route: 048
     Dates: start: 20190731, end: 20200326
  4. CLONIDINE 0.2/24 HOUR TRANSDERMAL [Concomitant]
  5. PREDNISONE 5 MG, ORAL (BID) [Concomitant]
     Dates: start: 20190201
  6. AMLODIPINE 10 MG, ORAL [Concomitant]
  7. QUINAPRIL 10 MG, ORAL [Concomitant]
  8. LABETALOL 200 MG, ORAL [Concomitant]
  9. ONDANSETRON 4 MG, ORAL [Concomitant]
  10. LEVETIRACETAM, 750 MG, ORAL [Concomitant]

REACTIONS (1)
  - Blood pressure increased [None]

NARRATIVE: CASE EVENT DATE: 20200326
